FAERS Safety Report 23848455 (Version 3)
Quarter: 2024Q3

REPORT INFORMATION
  Report Type: Spontaneous
  Country: US (occurrence: US)
  Receive Date: 20240513
  Receipt Date: 20240815
  Transmission Date: 20241016
  Serious: No
  Sender: KALEO
  Company Number: US-Kaleo, Inc.-2024KL000008

PATIENT
  Age: 20 Year
  Sex: Male

DRUGS (1)
  1. AUVI-Q [Suspect]
     Active Substance: EPINEPHRINE

REACTIONS (2)
  - No device malfunction [Not Recovered/Not Resolved]
  - No device malfunction [Not Recovered/Not Resolved]

NARRATIVE: CASE EVENT DATE: 20240414
